FAERS Safety Report 8119116-1 (Version None)
Quarter: 2012Q1

REPORT INFORMATION
  Report Type: 
  Country: None (occurrence: None)
  Receive Date: 20120207
  Receipt Date: 20120130
  Transmission Date: 20120608
  Serious: Yes (Other)
  Sender: FDA-Public Use
  Company Number: JP-ROCHE-1034606

PATIENT
  Sex: Female
  Weight: 18 kg

DRUGS (8)
  1. ASPIRIN [Concomitant]
     Dosage: DOSAGE IS UNCERTAIN.
     Route: 065
  2. ACETAMINOPHEN [Concomitant]
     Dosage: DOSAGE IS UNCERTAIN.
     Route: 048
  3. CEFDINIR [Concomitant]
     Dosage: DOSAGE IS UNCERTAIN.
     Route: 048
  4. MUCODYNE [Concomitant]
     Dosage: DOSAGE IS UNCERTAIN.
     Route: 048
  5. TAMIFLU [Suspect]
     Indication: INFLUENZA
     Route: 048
     Dates: start: 20120124, end: 20120124
  6. HOKUNALIN [Concomitant]
     Dosage: DOSAGE IS UNCERTAIN.
     Route: 062
  7. PERIACTIN [Concomitant]
     Dosage: DOSAGE IS UNCERTAIN.
     Route: 048
  8. BIFIDOBACTERIUM [Concomitant]
     Dosage: DOSAGE IS UNCERTAIN.
     Route: 048

REACTIONS (1)
  - ABNORMAL BEHAVIOUR [None]
